FAERS Safety Report 6038031-0 (Version None)
Quarter: 2009Q1

REPORT INFORMATION
  Report Type: 
  Country: None (occurrence: None)
  Receive Date: 20090114
  Receipt Date: 20090114
  Transmission Date: 20090719
  Serious: Yes (Other)
  Sender: FDA-Public Use
  Company Number: None

PATIENT
  Age: 91 Year
  Sex: Female
  Weight: 53.978 kg

DRUGS (1)
  1. INDOMETHACIN [Suspect]
     Indication: HAEMORRHAGE
     Dosage: 1 PILL ONLY STOPPED IT IMMEDIATELY
     Dates: start: 20081208

REACTIONS (1)
  - CHEST PAIN [None]
